FAERS Safety Report 7605806-3 (Version None)
Quarter: 2011Q3

REPORT INFORMATION
  Report Type: 
  Country: None (occurrence: None)
  Receive Date: 20110712
  Receipt Date: 20110712
  Transmission Date: 20111222
  Serious: Yes (Other)
  Sender: FDA-Public Use
  Company Number: None

PATIENT
  Age: 31 Year
  Sex: Female
  Weight: 54.4316 kg

DRUGS (1)
  1. ALLEGRA [Suspect]

REACTIONS (5)
  - PRODUCT SUBSTITUTION ISSUE [None]
  - FATIGUE [None]
  - DYSGEUSIA [None]
  - IMPAIRED DRIVING ABILITY [None]
  - DRUG EFFECT DECREASED [None]
